FAERS Safety Report 4448195-8 (Version None)
Quarter: 2004Q3

REPORT INFORMATION
  Report Type: 
  Country: None (occurrence: None)
  Receive Date: 20040913
  Receipt Date: 20040818
  Transmission Date: 20050211
  Serious: Yes (Other)
  Sender: FDA-Public Use
  Company Number: US-GLAXOSMITHKLINE-A0522644A

PATIENT
  Age: 47 Year
  Sex: Male

DRUGS (7)
  1. ZOFRAN [Suspect]
     Dosage: 24MG SEE DOSAGE TEXT
     Route: 042
     Dates: start: 20040501, end: 20040801
  2. ATIVAN [Concomitant]
  3. ZOLPIDEM TARTRATE [Concomitant]
  4. PERCOCET [Concomitant]
  5. FLUOROURACIL [Concomitant]
  6. LEUCOVORIN CALCIUM [Concomitant]
  7. FERROUS SULFATE TAB [Concomitant]

REACTIONS (2)
  - ANXIETY [None]
  - BLINDNESS UNILATERAL [None]
